FAERS Safety Report 8515359-3 (Version None)
Quarter: 2012Q3

REPORT INFORMATION
  Report Type: 
  Country: None (occurrence: None)
  Receive Date: 20120717
  Receipt Date: 20120706
  Transmission Date: 20120928
  Serious: Yes (Other)
  Sender: FDA-Public Use
  Company Number: US-ELI_LILLY_AND_COMPANY-US201207003538

PATIENT
  Sex: Female

DRUGS (2)
  1. FORTEO [Suspect]
     Indication: OSTEOPOROSIS
     Dosage: 20 UG, QD
  2. FORTEO [Suspect]
     Dosage: 20 UG, QD

REACTIONS (12)
  - JOINT SWELLING [None]
  - VISUAL IMPAIRMENT [None]
  - ASTHENOPIA [None]
  - ANKLE FRACTURE [None]
  - ARTHRALGIA [None]
  - IMPAIRED HEALING [None]
  - GLAUCOMA [None]
  - LOWER LIMB FRACTURE [None]
  - INJECTION SITE MASS [None]
  - SCAR [None]
  - ANXIETY [None]
  - BLOOD GLUCOSE DECREASED [None]
